FAERS Safety Report 6313488-6 (Version None)
Quarter: 2009Q3

REPORT INFORMATION
  Report Type: 
  Country: None (occurrence: None)
  Receive Date: 20090818
  Receipt Date: 20090813
  Transmission Date: 20100115
  Serious: Yes (Other)
  Sender: FDA-Public Use
  Company Number: US-BAYER-200929902NA

PATIENT
  Age: 6 Year
  Sex: Male

DRUGS (2)
  1. MAGNEVIST [Suspect]
     Indication: NUCLEAR MAGNETIC RESONANCE IMAGING
     Dates: start: 20090806, end: 20090806
  2. ANESTHESIA [Concomitant]

REACTIONS (2)
  - CYANOSIS [None]
  - ERYTHEMA [None]
